FAERS Safety Report 16201873 (Version 2)
Quarter: 2019Q2

REPORT INFORMATION
  Report Type: Spontaneous
  Country: US (occurrence: US)
  Receive Date: 20190416
  Receipt Date: 20190424
  Transmission Date: 20190711
  Serious: Yes (Hospitalization, Other)
  Sender: FDA-Public Use
  Company Number: US-SA-2019SA101647

PATIENT
  Age: 55 Year
  Sex: Male
  Weight: 85 kg

DRUGS (14)
  1. RITONAVIR. [Suspect]
     Active Substance: RITONAVIR
     Indication: HIV INFECTION
     Dosage: 100 MG, QD
     Route: 048
  2. CANDESARTAN. [Concomitant]
     Active Substance: CANDESARTAN
     Dosage: 16 MG, QD
     Route: 048
  3. HEPARIN [Concomitant]
     Active Substance: HEPARIN SODIUM
     Dosage: 5000 U, Q8H
     Route: 058
  4. ATAZANAVIR SULFATE. [Suspect]
     Active Substance: ATAZANAVIR SULFATE
     Indication: HIV INFECTION
     Dosage: 300 MG, QD
     Route: 048
  5. ABACAVIR/LAMIVUDINE [Concomitant]
     Active Substance: ABACAVIR\LAMIVUDINE
     Indication: HIV INFECTION
     Dosage: 600-300 MG, QD
     Route: 048
  6. VANCOMYCIN [Concomitant]
     Active Substance: VANCOMYCIN
     Dosage: 1.25 G, Q12H
     Route: 042
  7. LIDOCAINE HYDROCHLORIDE. [Interacting]
     Active Substance: LIDOCAINE HYDROCHLORIDE
     Dosage: 1 MG/KG, QH
     Route: 042
  8. METOPROLOL SUCCINATE. [Concomitant]
     Active Substance: METOPROLOL SUCCINATE
     Dosage: 25 MG, QD
     Route: 048
  9. FENTANYL. [Concomitant]
     Active Substance: FENTANYL
     Indication: PROCEDURAL PAIN
     Dosage: 30 ?G EVERY 10 MINUTES
     Route: 042
  10. LIDOCAINE HYDROCHLORIDE. [Suspect]
     Active Substance: LIDOCAINE HYDROCHLORIDE
     Indication: PROCEDURAL PAIN
     Dosage: 120 MG, UNK
     Route: 040
  11. ASPIRIN [ACETYLSALICYLIC ACID] [Concomitant]
     Active Substance: ASPIRIN
     Dosage: 325 MG, QD
     Route: 048
  12. LIDOCAINE HYDROCHLORIDE. [Interacting]
     Active Substance: LIDOCAINE HYDROCHLORIDE
     Dosage: 2 MG/KG, QH, FOR 2 HOURS (TOTAL DOSE 460 MG)
     Route: 042
  13. ROSUVASTATIN. [Concomitant]
     Active Substance: ROSUVASTATIN
     Dosage: 40 MG, QPM
     Route: 048
  14. CIPROFLOXACIN. [Concomitant]
     Active Substance: CIPROFLOXACIN
     Dosage: 400 MG, Q12H
     Route: 042

REACTIONS (12)
  - Hypertension [Recovering/Resolving]
  - Hyperhidrosis [Recovering/Resolving]
  - Drug level increased [Unknown]
  - Unresponsive to stimuli [Unknown]
  - Oxygen saturation decreased [Unknown]
  - Tachycardia [Unknown]
  - Sinus tachycardia [Recovering/Resolving]
  - Feeling hot [Recovering/Resolving]
  - Loss of consciousness [Recovered/Resolved]
  - Drug interaction [Unknown]
  - Toxicity to various agents [Recovering/Resolving]
  - Dizziness [Recovering/Resolving]
